FAERS Safety Report 7715500-6 (Version None)
Quarter: 2011Q3

REPORT INFORMATION
  Report Type: 
  Country: None (occurrence: None)
  Receive Date: 20110829
  Receipt Date: 20110822
  Transmission Date: 20111222
  Serious: Yes (Hospitalization)
  Sender: FDA-Public Use
  Company Number: GB-PFIZER INC-2011175750

PATIENT
  Age: 62 Year
  Sex: Female
  Weight: 80.2 kg

DRUGS (1)
  1. SUNITINIB MALATE [Suspect]
     Indication: METASTATIC OCULAR MELANOMA
     Dosage: 37.5 MG, 1X/DAY
     Route: 048
     Dates: start: 20110715, end: 20110727

REACTIONS (1)
  - LOWER RESPIRATORY TRACT INFECTION [None]
